FAERS Safety Report 13662367 (Version 1)
Quarter: 2017Q2

REPORT INFORMATION
  Report Type: Report from Study
  Country: US (occurrence: US)
  Receive Date: 20170617
  Receipt Date: 20170617
  Transmission Date: 20170830
  Serious: Yes (Death, Hospitalization)
  Sender: FDA-Public Use
  Company Number: US-TORRENT-00003039

PATIENT
  Age: 57 Year
  Sex: Female

DRUGS (4)
  1. ACETAMINOPHEN/HYDROCODONE [Suspect]
     Active Substance: ACETAMINOPHEN\HYDROCODONE
  2. TRAZODONE HYDROCHLORIDE. [Suspect]
     Active Substance: TRAZODONE HYDROCHLORIDE
  3. TRAMADOL. [Suspect]
     Active Substance: TRAMADOL
  4. SERTRALINE HCL [Suspect]
     Active Substance: SERTRALINE HYDROCHLORIDE

REACTIONS (3)
  - Completed suicide [Fatal]
  - Intentional overdose [None]
  - Toxicity to various agents [Fatal]
